FAERS Safety Report 13474039 (Version 1)
Quarter: 2017Q2

REPORT INFORMATION
  Report Type: Spontaneous
  Country: US (occurrence: US)
  Receive Date: 20170424
  Receipt Date: 20170424
  Transmission Date: 20170830
  Serious: Yes (Other)
  Sender: FDA-Public Use
  Company Number: US-SA-2017SA027624

PATIENT
  Age: 78 Year
  Sex: Male
  Weight: 115.9 kg

DRUGS (3)
  1. LOVENOX [Suspect]
     Active Substance: ENOXAPARIN SODIUM
     Route: 051
     Dates: start: 20170113, end: 20170121
  2. LOVENOX [Suspect]
     Active Substance: ENOXAPARIN SODIUM
     Route: 051
     Dates: start: 20170111, end: 20170113
  3. LOVENOX [Suspect]
     Active Substance: ENOXAPARIN SODIUM
     Route: 051
     Dates: start: 20170107

REACTIONS (3)
  - Abdominal pain lower [Recovered/Resolved]
  - Haemorrhage [Recovered/Resolved]
  - Abdominal wall haematoma [Recovered/Resolved]

NARRATIVE: CASE EVENT DATE: 20170119
